FAERS Safety Report 7824547-0 (Version None)
Quarter: 2011Q4

REPORT INFORMATION
  Report Type: 
  Country: None (occurrence: None)
  Receive Date: 20111019
  Receipt Date: 20111005
  Transmission Date: 20120403
  Serious: Yes (Other)
  Sender: FDA-Public Use
  Company Number: CH-ELI_LILLY_AND_COMPANY-CH201110002299

PATIENT
  Age: 31 Year
  Sex: Female

DRUGS (3)
  1. CYMBALTA [Suspect]
     Indication: DEPRESSION
     Dosage: 60 MG, QD
     Dates: start: 20091001
  2. CO-DAFALGAN [Concomitant]
     Indication: MIGRAINE
     Dosage: 1 DF, 2/W
  3. ALMOGRAN [Concomitant]
     Indication: MIGRAINE
     Dosage: 12.5 MG, 2/W

REACTIONS (1)
  - MATERNAL EXPOSURE DURING PREGNANCY [None]
